FAERS Safety Report 17559860 (Version 1)
Quarter: 2020Q1

REPORT INFORMATION
  Report Type: Spontaneous
  Country: MY (occurrence: MY)
  Receive Date: 20200319
  Receipt Date: 20200319
  Transmission Date: 20200409
  Serious: Yes (Other)
  Sender: FDA-Public Use
  Company Number: MY-ROCHE-2565497

PATIENT
  Sex: Male

DRUGS (59)
  1. RITUXIMAB. [Suspect]
     Active Substance: RITUXIMAB
     Dosage: 3RD CYCLE R-EPOCH
     Route: 065
     Dates: start: 20171014
  2. ETOPOSIDE. [Suspect]
     Active Substance: ETOPOSIDE
     Dosage: 3RD CYCLE R-EPOCH
     Route: 065
     Dates: start: 20171014
  3. ETOPOSIDE. [Suspect]
     Active Substance: ETOPOSIDE
     Dosage: 4TH CYCLE R-EPOCH
     Route: 065
     Dates: start: 20171115
  4. CYCLOPHOSPHAMIDE. [Suspect]
     Active Substance: CYCLOPHOSPHAMIDE
     Dosage: 4TH CYCLE R-EPOCH
     Route: 065
     Dates: start: 20171115
  5. CYCLOPHOSPHAMIDE. [Suspect]
     Active Substance: CYCLOPHOSPHAMIDE
     Dosage: 6TH CYCLE R-EPOCH
     Route: 065
     Dates: start: 20180201
  6. METHOTREXATE. [Suspect]
     Active Substance: METHOTREXATE
     Indication: B-CELL LYMPHOMA
     Dosage: HD MTX
     Route: 065
     Dates: start: 20171213
  7. CYTARABINE. [Suspect]
     Active Substance: CYTARABINE
     Dosage: 3RD CYCLE DHAP
     Route: 065
     Dates: start: 20181002
  8. VELCADE [Suspect]
     Active Substance: BORTEZOMIB
     Dosage: VELCADE D2
     Route: 065
     Dates: start: 20181228
  9. PREDNISOLONE. [Suspect]
     Active Substance: PREDNISOLONE
     Indication: B-CELL LYMPHOMA
     Dosage: 1ST CYCLE R-EPOCH
     Route: 065
     Dates: start: 20170821
  10. PREDNISOLONE. [Suspect]
     Active Substance: PREDNISOLONE
     Dosage: 2ND CYCLE R-EPOCH
     Route: 065
     Dates: start: 20170921
  11. PREDNISOLONE. [Suspect]
     Active Substance: PREDNISOLONE
     Dosage: 4TH CYCLE R-EPOCH
     Route: 065
     Dates: start: 20171115
  12. PREDNISOLONE. [Suspect]
     Active Substance: PREDNISOLONE
     Dosage: 6TH CYCLE R-EPOCH
     Route: 065
     Dates: start: 20180201
  13. VINCRISTINE [Suspect]
     Active Substance: VINCRISTINE
     Dosage: 6TH CYCLE R-EPOCH
     Route: 065
     Dates: start: 20180201
  14. CYCLOPHOSPHAMIDE. [Suspect]
     Active Substance: CYCLOPHOSPHAMIDE
     Dosage: 2ND CYCLE R-EPOCH
     Route: 065
     Dates: start: 20170921
  15. DEXAMETHASONE. [Suspect]
     Active Substance: DEXAMETHASONE
     Dosage: 3RD CYCLE DHAP
     Route: 065
     Dates: start: 20181002
  16. RITUXIMAB. [Suspect]
     Active Substance: RITUXIMAB
     Dosage: 4TH CYCLE R-EPOCH
     Route: 065
     Dates: start: 20171115
  17. RITUXIMAB. [Suspect]
     Active Substance: RITUXIMAB
     Dosage: 5TH CYCLE R-EPOCH
     Route: 065
     Dates: start: 20171226
  18. RITUXIMAB. [Suspect]
     Active Substance: RITUXIMAB
     Dosage: R-BLOCK A1
     Route: 065
     Dates: start: 20181122, end: 20181127
  19. VINCRISTINE [Suspect]
     Active Substance: VINCRISTINE
     Indication: B-CELL LYMPHOMA
     Dosage: 1ST CYCLE R-EPOCH
     Route: 065
     Dates: start: 20170821
  20. VINCRISTINE [Suspect]
     Active Substance: VINCRISTINE
     Dosage: 4TH CYCLE R-EPOCH
     Route: 065
     Dates: start: 20171115
  21. DOXORUBICIN [Suspect]
     Active Substance: DOXORUBICIN
     Dosage: 2ND CYCLE R-EPOCH
     Route: 065
     Dates: start: 20170921
  22. DOXORUBICIN [Suspect]
     Active Substance: DOXORUBICIN
     Dosage: 5TH CYCLE R-EPOCH
     Route: 065
     Dates: start: 20171226
  23. METHOTREXATE. [Suspect]
     Active Substance: METHOTREXATE
     Dosage: HD MTX
     Route: 065
     Dates: start: 20180328
  24. DEXAMETHASONE. [Suspect]
     Active Substance: DEXAMETHASONE
     Indication: B-CELL LYMPHOMA
     Dosage: 1ST CYCLE DHAP
     Route: 065
     Dates: start: 20180731
  25. CYTARABINE. [Suspect]
     Active Substance: CYTARABINE
     Dosage: PART OF BEAM
     Route: 065
     Dates: start: 20190308
  26. CISPLATIN. [Suspect]
     Active Substance: CISPLATIN
     Dosage: 3RD CYCLE DHAP
     Route: 065
     Dates: start: 20181002
  27. VELCADE [Suspect]
     Active Substance: BORTEZOMIB
     Indication: B-CELL LYMPHOMA
     Dosage: DAY 1 VELCADE
     Route: 065
     Dates: start: 20181123
  28. ETOPOSIDE. [Suspect]
     Active Substance: ETOPOSIDE
     Indication: B-CELL LYMPHOMA
     Dosage: 1ST CYCLE R-EPOCH
     Route: 065
     Dates: start: 20170821
  29. PREDNISOLONE. [Suspect]
     Active Substance: PREDNISOLONE
     Dosage: 3RD CYCLE R-EPOCH
     Route: 065
     Dates: start: 20171014
  30. PREDNISOLONE. [Suspect]
     Active Substance: PREDNISOLONE
     Dosage: 5TH CYCLE R-EPOCH
     Route: 065
     Dates: start: 20171226
  31. VINCRISTINE [Suspect]
     Active Substance: VINCRISTINE
     Dosage: 5TH CYCLE R-EPOCH
     Route: 065
     Dates: start: 20171226
  32. CARMUSTINE. [Suspect]
     Active Substance: CARMUSTINE
     Indication: AUTOLOGOUS HAEMATOPOIETIC STEM CELL TRANSPLANT
     Dosage: PART OF BEAM
     Route: 065
     Dates: start: 20190308
  33. ETOPOSIDE. [Suspect]
     Active Substance: ETOPOSIDE
     Indication: AUTOLOGOUS HAEMATOPOIETIC STEM CELL TRANSPLANT
     Dosage: 2ND CYCLE R-EPOCH
     Route: 065
     Dates: start: 20170921
  34. CYCLOPHOSPHAMIDE. [Suspect]
     Active Substance: CYCLOPHOSPHAMIDE
     Indication: B-CELL LYMPHOMA
     Dosage: 1ST CYCLE R-EPOCH
     Route: 065
     Dates: start: 20170821
  35. CYTARABINE. [Suspect]
     Active Substance: CYTARABINE
     Indication: B-CELL LYMPHOMA
     Dosage: 1ST CYCLE DHAP
     Route: 065
     Dates: start: 20180731
  36. RITUXIMAB. [Suspect]
     Active Substance: RITUXIMAB
     Dosage: 6TH CYCLE R-EPOCH
     Route: 065
     Dates: start: 20180201
  37. VINCRISTINE [Suspect]
     Active Substance: VINCRISTINE
     Dosage: 2ND CYCLE R-EPOCH
     Route: 065
     Dates: start: 20170921
  38. VINCRISTINE [Suspect]
     Active Substance: VINCRISTINE
     Dosage: 3RD CYCLE R-EPOCH
     Route: 065
     Dates: start: 20171014
  39. CYCLOPHOSPHAMIDE. [Suspect]
     Active Substance: CYCLOPHOSPHAMIDE
     Dosage: 5TH CYCLE R-EPOCH
     Route: 065
     Dates: start: 20171226
  40. DOXORUBICIN [Suspect]
     Active Substance: DOXORUBICIN
     Indication: B-CELL LYMPHOMA
     Dosage: 1ST CYCLE R-EPOCH
     Route: 065
     Dates: start: 20170821
  41. DOXORUBICIN [Suspect]
     Active Substance: DOXORUBICIN
     Dosage: 3RD CYCLE R-EPOCH
     Route: 065
     Dates: start: 20171014
  42. DEXAMETHASONE. [Suspect]
     Active Substance: DEXAMETHASONE
     Dosage: 2ND CYCLE DHAP
     Route: 065
     Dates: start: 20180821
  43. CISPLATIN. [Suspect]
     Active Substance: CISPLATIN
     Indication: B-CELL LYMPHOMA
     Dosage: 1ST CYCLE DHAP
     Route: 065
     Dates: start: 20180731
  44. VELCADE [Suspect]
     Active Substance: BORTEZOMIB
     Dosage: DAY 8 VELCADE
     Route: 065
     Dates: start: 20181130
  45. RITUXIMAB. [Suspect]
     Active Substance: RITUXIMAB
     Dosage: 2ND CYCLE R-EPOCH
     Route: 065
     Dates: start: 20170921, end: 20170925
  46. ETOPOSIDE. [Suspect]
     Active Substance: ETOPOSIDE
     Dosage: 5TH CYCLE R-EPOCH
     Route: 065
     Dates: start: 20171226
  47. ETOPOSIDE. [Suspect]
     Active Substance: ETOPOSIDE
     Dosage: PART OF BEAM
     Route: 065
     Dates: start: 20190308
  48. DOXORUBICIN [Suspect]
     Active Substance: DOXORUBICIN
     Dosage: 6TH CYCLE R-EPOCH
     Route: 065
     Dates: start: 20180201
  49. MELPHALAN. [Suspect]
     Active Substance: MELPHALAN
     Indication: AUTOLOGOUS HAEMATOPOIETIC STEM CELL TRANSPLANT
     Dosage: PART OF BEAM
     Route: 065
     Dates: start: 20190308
  50. VELCADE [Suspect]
     Active Substance: BORTEZOMIB
     Indication: B-CELL LYMPHOMA
     Dosage: DAY 1 VELCADE
     Route: 058
     Dates: start: 20190129
  51. RITUXIMAB. [Suspect]
     Active Substance: RITUXIMAB
     Indication: B-CELL LYMPHOMA
     Dosage: 1ST CYCLE R-EPOCH
     Route: 065
     Dates: start: 20170821, end: 20170827
  52. RITUXIMAB. [Suspect]
     Active Substance: RITUXIMAB
     Dosage: R-BLOCK B1
     Route: 065
     Dates: start: 20181227
  53. RITUXIMAB. [Suspect]
     Active Substance: RITUXIMAB
     Dosage: R-BLOCK A2
     Route: 065
     Dates: start: 20190129
  54. ETOPOSIDE. [Suspect]
     Active Substance: ETOPOSIDE
     Dosage: 6TH CYCLE R-EPOCH
     Route: 065
     Dates: start: 20180201
  55. CYCLOPHOSPHAMIDE. [Suspect]
     Active Substance: CYCLOPHOSPHAMIDE
     Dosage: 3RD CYCLE R-EPOCH
     Route: 065
     Dates: start: 20171014
  56. DOXORUBICIN [Suspect]
     Active Substance: DOXORUBICIN
     Dosage: 4TH CYCLE R-EPOCH
     Route: 065
     Dates: start: 20171115
  57. CYTARABINE. [Suspect]
     Active Substance: CYTARABINE
     Indication: AUTOLOGOUS HAEMATOPOIETIC STEM CELL TRANSPLANT
     Dosage: 2ND CYCLE DHAP
     Route: 065
     Dates: start: 20180821
  58. CISPLATIN. [Suspect]
     Active Substance: CISPLATIN
     Dosage: 2ND CYCLE DHAP
     Route: 065
     Dates: start: 20180821
  59. VELCADE [Suspect]
     Active Substance: BORTEZOMIB
     Dosage: DAY 8 VELCADE
     Route: 058
     Dates: start: 20190205

REACTIONS (7)
  - Off label use [Unknown]
  - Stomatitis [Unknown]
  - B-cell lymphoma refractory [Unknown]
  - Neutropenic sepsis [Unknown]
  - Therapy partial responder [Unknown]
  - Intentional product use issue [Unknown]
  - Hepatitis B reactivation [Recovered/Resolved]

NARRATIVE: CASE EVENT DATE: 20170821
